FAERS Safety Report 8718034 (Version 2)
Quarter: 2012Q4

REPORT INFORMATION
  Report Type: Report from Study
  Country: NL (occurrence: NL)
  Receive Date: 20120810
  Receipt Date: 20121001
  Transmission Date: 20130627
  Serious: Yes (Hospitalization)
  Sender: FDA-Public Use
  Company Number: NL-ROCHE-1095459

PATIENT
  Age: 61 Year
  Sex: Male

DRUGS (3)
  1. EPIRUBICIN HYDROCHLORIDE [Suspect]
     Indication: GASTRIC CANCER
     Dosage: last dose was administered on 10/Jul/2012
     Route: 042
     Dates: start: 20120123
  2. CISPLATIN [Suspect]
     Indication: GASTRIC CANCER
     Dosage: last dose was administered on 10/Jul/2012
     Route: 042
     Dates: start: 20120123
  3. XELODA [Suspect]
     Indication: GASTRIC CANCER
     Dosage: last dose was administered on 24/Jul/2012
     Route: 048
     Dates: start: 20120123

REACTIONS (1)
  - Diverticular perforation [Recovered/Resolved]
